FAERS Safety Report 20319917 (Version 3)
Quarter: 2022Q4

REPORT INFORMATION
  Report Type: Other
  Country: CN (occurrence: None)
  Receive Date: 20220111
  Receipt Date: 20221203
  Transmission Date: 20230113
  Serious: Yes (Death, Other)
  Sender: FDA-Public Use
  Company Number: CN-ROCHE-2860084

PATIENT
  Age: 59 Year
  Sex: Male
  Weight: 67 kg

DRUGS (5)
  1. AVASTIN [Suspect]
     Active Substance: BEVACIZUMAB
     Indication: Non-small cell lung cancer
     Route: 041
     Dates: start: 20170929
  2. AVASTIN [Suspect]
     Active Substance: BEVACIZUMAB
     Route: 041
     Dates: start: 20180717, end: 20210518
  3. AVASTIN [Suspect]
     Active Substance: BEVACIZUMAB
     Route: 041
     Dates: start: 20210907
  4. AVASTIN [Suspect]
     Active Substance: BEVACIZUMAB
     Route: 041
  5. AVASTIN [Suspect]
     Active Substance: BEVACIZUMAB
     Route: 041
     Dates: start: 20220215

REACTIONS (8)
  - Anaemia [Recovered/Resolved]
  - Weight decreased [Unknown]
  - Pleural effusion [Not Recovered/Not Resolved]
  - Cystic lung disease [Not Recovered/Not Resolved]
  - Pulmonary fibrosis [Not Recovered/Not Resolved]
  - Inflammation [Not Recovered/Not Resolved]
  - Platelet count decreased [Unknown]
  - Tracheal haemorrhage [Fatal]

NARRATIVE: CASE EVENT DATE: 20211116
